FAERS Safety Report 25886904 (Version 1)
Quarter: 2025Q4

REPORT INFORMATION
  Report Type: Spontaneous
  Country: CA (occurrence: CA)
  Receive Date: 20251006
  Receipt Date: 20251006
  Transmission Date: 20260118
  Serious: Yes (Hospitalization)
  Sender: MYLAN
  Company Number: CA-MYLANLABS-2025M1084045

PATIENT
  Sex: Female
  Weight: 2 kg

DRUGS (24)
  1. VENLAFAXINE [Suspect]
     Active Substance: VENLAFAXINE HYDROCHLORIDE
     Indication: Anxiety
     Dosage: 112 MILLIGRAM, QD (1 EVERY 1 DAYS)
  2. VENLAFAXINE [Suspect]
     Active Substance: VENLAFAXINE HYDROCHLORIDE
     Dosage: 112 MILLIGRAM, QD (1 EVERY 1 DAYS)
     Route: 048
  3. VENLAFAXINE [Suspect]
     Active Substance: VENLAFAXINE HYDROCHLORIDE
     Dosage: 112 MILLIGRAM, QD (1 EVERY 1 DAYS)
     Route: 048
  4. VENLAFAXINE [Suspect]
     Active Substance: VENLAFAXINE HYDROCHLORIDE
     Dosage: 112 MILLIGRAM, QD (1 EVERY 1 DAYS)
  5. ACETAMINOPHEN [Concomitant]
     Active Substance: ACETAMINOPHEN
     Dosage: UNK
  6. ACETAMINOPHEN [Concomitant]
     Active Substance: ACETAMINOPHEN
     Dosage: UNK
     Route: 065
  7. ACETAMINOPHEN [Concomitant]
     Active Substance: ACETAMINOPHEN
     Dosage: UNK
     Route: 065
  8. ACETAMINOPHEN [Concomitant]
     Active Substance: ACETAMINOPHEN
     Dosage: UNK
  9. ALPROSTADIL [Concomitant]
     Active Substance: ALPROSTADIL
     Dosage: UNK
  10. ALPROSTADIL [Concomitant]
     Active Substance: ALPROSTADIL
     Dosage: UNK
     Route: 065
  11. ALPROSTADIL [Concomitant]
     Active Substance: ALPROSTADIL
     Dosage: UNK
     Route: 065
  12. ALPROSTADIL [Concomitant]
     Active Substance: ALPROSTADIL
     Dosage: UNK
  13. AMPICILLIN [Concomitant]
     Active Substance: AMPICILLIN
     Dosage: UNK
  14. AMPICILLIN [Concomitant]
     Active Substance: AMPICILLIN
     Dosage: UNK
     Route: 065
  15. AMPICILLIN [Concomitant]
     Active Substance: AMPICILLIN
     Dosage: UNK
     Route: 065
  16. AMPICILLIN [Concomitant]
     Active Substance: AMPICILLIN
     Dosage: UNK
  17. CHOLECALCIFEROL [Concomitant]
     Active Substance: CHOLECALCIFEROL
     Dosage: UNK
  18. CHOLECALCIFEROL [Concomitant]
     Active Substance: CHOLECALCIFEROL
     Dosage: UNK
     Route: 065
  19. CHOLECALCIFEROL [Concomitant]
     Active Substance: CHOLECALCIFEROL
     Dosage: UNK
     Route: 065
  20. CHOLECALCIFEROL [Concomitant]
     Active Substance: CHOLECALCIFEROL
     Dosage: UNK
  21. GENTAMICIN [Concomitant]
     Active Substance: GENTAMICIN
     Dosage: UNK (FORMULATION: DROPS)
  22. GENTAMICIN [Concomitant]
     Active Substance: GENTAMICIN
     Dosage: UNK (FORMULATION: DROPS)
     Route: 065
  23. GENTAMICIN [Concomitant]
     Active Substance: GENTAMICIN
     Dosage: UNK (FORMULATION: DROPS)
     Route: 065
  24. GENTAMICIN [Concomitant]
     Active Substance: GENTAMICIN
     Dosage: UNK (FORMULATION: DROPS)

REACTIONS (3)
  - Cardiac failure [Recovered/Resolved]
  - Pulmonary arterial hypertension [Recovered/Resolved]
  - Maternal exposure during pregnancy [Recovered/Resolved]
